FAERS Safety Report 8484327-2 (Version None)
Quarter: 2012Q3

REPORT INFORMATION
  Report Type: 
  Country: None (occurrence: None)
  Receive Date: 20120703
  Receipt Date: 20120625
  Transmission Date: 20120928
  Serious: Yes (Hospitalization)
  Sender: FDA-Public Use
  Company Number: PHHY2011JP29349

PATIENT
  Sex: Female
  Weight: 44 kg

DRUGS (4)
  1. MAGLAX [Concomitant]
     Dosage: 990 MG, UNK
     Route: 048
     Dates: start: 20100323, end: 20100528
  2. ALISKIREN [Suspect]
     Indication: HYPERTENSION
     Dosage: 150 MG, UNK
     Route: 048
     Dates: start: 20100323, end: 20100528
  3. CALBLOCK [Concomitant]
     Dosage: 16 MG, UNK
     Route: 048
     Dates: start: 20100323, end: 20100528
  4. ALENDRONATE SODIUM [Concomitant]
     Dosage: 5 MG, UNK
     Route: 048
     Dates: start: 20100323, end: 20100528

REACTIONS (2)
  - SPINAL CORD INJURY CERVICAL [None]
  - ROAD TRAFFIC ACCIDENT [None]
